FAERS Safety Report 17365107 (Version 1)
Quarter: 2020Q1

REPORT INFORMATION
  Report Type: Spontaneous
  Country: HK (occurrence: HK)
  Receive Date: 20200204
  Receipt Date: 20200204
  Transmission Date: 20200409
  Serious: Yes (Other)
  Sender: FDA-Public Use
  Company Number: HK-ACTELION-A-CH2020-201047

PATIENT
  Age: 22 Year
  Sex: Female
  Weight: 47.3 kg

DRUGS (6)
  1. TRACLEER [Suspect]
     Active Substance: BOSENTAN
     Indication: PULMONARY ARTERIAL HYPERTENSION
     Route: 048
  2. UPTRAVI [Suspect]
     Active Substance: SELEXIPAG
     Dosage: 400 MCG, QD
     Route: 048
  3. SILDENAFIL. [Concomitant]
     Active Substance: SILDENAFIL
  4. WARFARIN [Concomitant]
     Active Substance: WARFARIN
  5. UPTRAVI [Suspect]
     Active Substance: SELEXIPAG
     Indication: PULMONARY ARTERIAL HYPERTENSION
     Dosage: 1600 MCG, QD
     Route: 048
  6. ILOPROST. [Concomitant]
     Active Substance: ILOPROST
     Route: 042

REACTIONS (3)
  - Nausea [Recovered/Resolved]
  - Headache [Recovered/Resolved]
  - Diarrhoea [Recovered/Resolved]
